FAERS Safety Report 6960935-2 (Version None)
Quarter: 2010Q3

REPORT INFORMATION
  Report Type: 
  Country: None (occurrence: None)
  Receive Date: 20100901
  Receipt Date: 20100820
  Transmission Date: 20110219
  Serious: Yes (Other)
  Sender: FDA-Public Use
  Company Number: GB-WATSON-2010-11480

PATIENT
  Age: 24 Year
  Sex: Male
  Weight: 86 kg

DRUGS (1)
  1. CITALOPRAM HYDROBROMIDE [Suspect]
     Indication: DEPRESSION
     Dosage: 20 MG, UNKNOWN
     Dates: start: 20100720

REACTIONS (3)
  - BALANITIS [None]
  - ERYTHEMA [None]
  - FEELING HOT [None]
